FAERS Safety Report 19719797 (Version 1)
Quarter: 2021Q3

REPORT INFORMATION
  Report Type: Spontaneous
  Country: GB (occurrence: GB)
  Receive Date: 20210818
  Receipt Date: 20210818
  Transmission Date: 20211014
  Serious: Yes (Disabling, Other)
  Sender: FDA-Public Use
  Company Number: GB-MYLANLABS-2021M1051982

PATIENT
  Age: 42 Year
  Sex: Female
  Weight: 95.25 kg

DRUGS (1)
  1. DOXYCYCLINE. [Suspect]
     Active Substance: DOXYCYCLINE
     Indication: LYME DISEASE
     Dosage: 100 MILLIGRAM, QD
     Route: 048
     Dates: start: 20210730, end: 20210806

REACTIONS (14)
  - Dyspnoea [Recovering/Resolving]
  - Lip swelling [Not Recovered/Not Resolved]
  - Blister [Unknown]
  - Vision blurred [Recovered/Resolved with Sequelae]
  - Pruritus [Unknown]
  - Skin exfoliation [Not Recovered/Not Resolved]
  - Paraesthesia [Unknown]
  - Migraine [Recovered/Resolved with Sequelae]
  - Hyperaesthesia [Not Recovered/Not Resolved]
  - Eye pain [Unknown]
  - Eye irritation [Not Recovered/Not Resolved]
  - Eyelids pruritus [Not Recovered/Not Resolved]
  - Eye pruritus [Unknown]
  - Erythema [Unknown]

NARRATIVE: CASE EVENT DATE: 20210731
